FAERS Safety Report 8454898-0 (Version None)
Quarter: 2012Q2

REPORT INFORMATION
  Report Type: 
  Country: None (occurrence: None)
  Receive Date: 20120615
  Receipt Date: 20120615
  Transmission Date: 20120825
  Serious: Yes (Death, Hospitalization, Other)
  Sender: FDA-Public Use
  Company Number: None

PATIENT
  Age: 30 Year
  Sex: Female
  Weight: 90.7194 kg

DRUGS (6)
  1. LAMICTAL [Concomitant]
  2. SUMAVEL [Concomitant]
  3. TOPAMAX [Concomitant]
  4. SEROQUEL XR [Suspect]
     Indication: BIPOLAR DISORDER
     Dosage: 300 MG XR 2 HS ORALLY
     Route: 048
     Dates: start: 20100824
  5. LIPITOR [Concomitant]
  6. RESTORIL [Concomitant]

REACTIONS (1)
  - CATARACT [None]
